FAERS Safety Report 9232252 (Version 1)
Quarter: 2013Q2

REPORT INFORMATION
  Report Type: Spontaneous
  Country: PH (occurrence: PH)
  Receive Date: 20130415
  Receipt Date: 20130415
  Transmission Date: 20140414
  Serious: Yes (Death)
  Sender: FDA-Public Use
  Company Number: PH-009507513-1304PHL006010

PATIENT
  Age: 72 Year
  Sex: Female

DRUGS (2)
  1. JANUVIA [Suspect]
     Dosage: 1 TABLET, QD
     Route: 048
     Dates: start: 201004
  2. METFORMIN [Concomitant]

REACTIONS (1)
  - Diabetes mellitus [Fatal]
